FAERS Safety Report 4640183-1 (Version None)
Quarter: 2005Q2

REPORT INFORMATION
  Report Type: 
  Country: None (occurrence: None)
  Receive Date: 20050406
  Receipt Date: 20030414
  Transmission Date: 20051028
  Serious: Yes (Hospitalization)
  Sender: FDA-Public Use
  Company Number: FR-SANOFI-SYNTHELABO-F01200300454

PATIENT
  Age: 57 Year
  Sex: Female

DRUGS (8)
  1. RASBURICASE [Suspect]
     Indication: HYPERURICAEMIA
     Dosage: 10.5 MG INTRAVENOUS NOS
     Route: 042
     Dates: start: 20030115, end: 20030118
  2. RASBURICASE [Suspect]
     Indication: NON-HODGKIN'S LYMPHOMA
     Dosage: 10.5 MG INTRAVENOUS NOS
     Route: 042
     Dates: start: 20030115, end: 20030118
  3. LYSANXIA 10   (PRAZEPAM) [Concomitant]
  4. CYCLOPHOSPHAMIDE [Concomitant]
  5. DOXORUBICIN HCL [Concomitant]
  6. VINCRISTINE [Concomitant]
  7. PREDNISONE [Concomitant]
  8. RITUXIMAB [Concomitant]

REACTIONS (7)
  - BLOOD POTASSIUM DECREASED [None]
  - BRONCHOSPASM [None]
  - CHILLS [None]
  - DYSPNOEA [None]
  - HAEMOGLOBIN DECREASED [None]
  - HYPERTHERMIA [None]
  - HYPOTENSION [None]
